FAERS Safety Report 6387850-X (Version None)
Quarter: 2009Q4

REPORT INFORMATION
  Report Type: 
  Country: None (occurrence: None)
  Receive Date: 20091005
  Receipt Date: 20090929
  Transmission Date: 20100525
  Serious: Yes (Hospitalization, Other)
  Sender: FDA-Public Use
  Company Number: JP-BAYER-200911176BYL

PATIENT
  Age: 55 Year
  Sex: Female

DRUGS (14)
  1. NEXAVAR [Suspect]
     Indication: RENAL CELL CARCINOMA STAGE IV
     Dosage: UNIT DOSE: 200 MG
     Route: 048
     Dates: start: 20090317, end: 20090322
  2. NEXAVAR [Suspect]
     Dosage: UNIT DOSE: 200 MG
     Route: 048
     Dates: start: 20090323, end: 20090325
  3. NEXAVAR [Suspect]
     Dosage: TOTAL DAILY DOSE: 400 MG  UNIT DOSE: 200 MG
     Route: 048
     Dates: start: 20090425, end: 20090805
  4. NEXAVAR [Suspect]
     Dosage: TOTAL DAILY DOSE: 400 MG  UNIT DOSE: 200 MG
     Route: 048
     Dates: start: 20090825, end: 20090902
  5. NEXAVAR [Suspect]
     Dosage: UNIT DOSE: 200 MG
     Route: 048
     Dates: start: 20090918, end: 20090928
  6. NEXAVAR [Suspect]
     Dosage: UNIT DOSE: 200 MG
     Route: 048
     Dates: start: 20090903, end: 20090917
  7. DEPAKENE [Suspect]
     Indication: EPILEPSY
     Route: 048
     Dates: start: 20090626, end: 20090828
  8. LOXONIN [Concomitant]
     Route: 048
     Dates: start: 20090321, end: 20090328
  9. MUCOSTA [Concomitant]
     Route: 048
     Dates: start: 20090321, end: 20090328
  10. VOLTAREN [Concomitant]
     Route: 048
     Dates: start: 20090321, end: 20090328
  11. ASVERIN [Concomitant]
     Route: 048
     Dates: start: 20090330, end: 20090404
  12. CODEINE PHOSPHATE [Concomitant]
     Route: 048
     Dates: start: 20090404
  13. DIHYDROCODEINE PHOSPHATE [Concomitant]
     Route: 048
     Dates: start: 20090407
  14. GABAPEN [Concomitant]
     Route: 048
     Dates: start: 20090828

REACTIONS (7)
  - CEREBRAL HAEMORRHAGE [None]
  - EPILEPSY [None]
  - HEPATIC FUNCTION ABNORMAL [None]
  - HYPOGLYCAEMIA [None]
  - HYPOTHYROIDISM [None]
  - PALMAR-PLANTAR ERYTHRODYSAESTHESIA SYNDROME [None]
  - PLATELET COUNT DECREASED [None]
